FAERS Safety Report 10168612 (Version 1)
Quarter: 2014Q2

REPORT INFORMATION
  Report Type: Report from Study
  Country: US (occurrence: US)
  Receive Date: 20140513
  Receipt Date: 20140513
  Transmission Date: 20141212
  Serious: Yes (Other)
  Sender: FDA-Public Use
  Company Number: US-ROCHE-1400011

PATIENT
  Age: 7 Year
  Sex: Male
  Weight: 22.1 kg

DRUGS (3)
  1. NUTROPIN AQ [Suspect]
     Indication: BODY HEIGHT BELOW NORMAL
     Route: 058
     Dates: start: 201005
  2. NUTROPIN AQ [Suspect]
     Route: 058
     Dates: start: 20131022, end: 20131022
  3. NUTROPIN AQ [Suspect]
     Route: 058
     Dates: start: 20131022

REACTIONS (2)
  - Insulin-like growth factor increased [Unknown]
  - Weight increased [Unknown]
